FAERS Safety Report 7465457-0 (Version None)
Quarter: 2011Q2

REPORT INFORMATION
  Report Type: 
  Country: None (occurrence: None)
  Receive Date: 20110509
  Receipt Date: 20110505
  Transmission Date: 20111010
  Serious: Yes (Other)
  Sender: FDA-Public Use
  Company Number: SE-PFIZER INC-2011096508

PATIENT
  Age: 92 Year
  Sex: Female

DRUGS (5)
  1. FURIX [Concomitant]
     Dosage: UNK
  2. MORPHINE [Suspect]
     Indication: PAIN
     Dosage: 40 MG DAILY
     Route: 048
     Dates: start: 20110227, end: 20110304
  3. MOVIPREP [Concomitant]
     Dosage: UNK
  4. OMEPRAZOL ACTAVIS [Concomitant]
     Dosage: UNK
  5. KALCIPOS-D [Concomitant]
     Dosage: UNK

REACTIONS (2)
  - DYSPNOEA [None]
  - SOMNOLENCE [None]
